FAERS Safety Report 4708449-4 (Version None)
Quarter: 2005Q3

REPORT INFORMATION
  Report Type: 
  Country: None (occurrence: None)
  Receive Date: 20050705
  Receipt Date: 20050624
  Transmission Date: 20060218
  Serious: Yes (Hospitalization)
  Sender: FDA-Public Use
  Company Number: 200505363

PATIENT
  Age: 54 Year
  Sex: Female

DRUGS (1)
  1. BOTOX [Suspect]
     Indication: DRUG USE FOR UNKNOWN INDICATION

REACTIONS (6)
  - DYSARTHRIA [None]
  - EYELID PTOSIS [None]
  - FLUSHING [None]
  - MUSCULAR WEAKNESS [None]
  - RASH [None]
  - RESPIRATORY DISORDER [None]
